FAERS Safety Report 5751358-2 (Version None)
Quarter: 2008Q2

REPORT INFORMATION
  Report Type: 
  Country: None (occurrence: None)
  Receive Date: 20080528
  Receipt Date: 20080519
  Transmission Date: 20081010
  Serious: Yes (Hospitalization, Other)
  Sender: FDA-Public Use
  Company Number: US-ABBOTT-08P-163-0452446-00

PATIENT
  Sex: Female
  Weight: 72.64 kg

DRUGS (17)
  1. HUMIRA [Suspect]
     Indication: RHEUMATOID ARTHRITIS
     Route: 058
     Dates: start: 20070601, end: 20080301
  2. METHOTREXATE [Concomitant]
     Indication: RHEUMATOID ARTHRITIS
     Route: 048
     Dates: start: 20020101
  3. ESTRADIOL [Concomitant]
     Indication: MENOPAUSE
     Route: 048
     Dates: start: 20030101
  4. SERTRALINE [Concomitant]
     Indication: ANXIETY
     Route: 048
     Dates: start: 19930101
  5. SERTRALINE [Concomitant]
     Indication: STRESS
  6. SERTRALINE [Concomitant]
     Indication: DEPRESSION
  7. HYDROXYCHLOROQUINE SULFATE [Concomitant]
     Indication: RHEUMATOID ARTHRITIS
     Route: 048
     Dates: start: 20030101
  8. FOLINIC ACID [Concomitant]
     Indication: RHEUMATOID ARTHRITIS
     Route: 048
     Dates: start: 20030101
  9. FOLIC ACID [Concomitant]
     Indication: PROPHYLAXIS
     Route: 048
     Dates: start: 20030101
  10. ZINC [Concomitant]
     Indication: MOUTH ULCERATION
     Route: 048
     Dates: start: 19880101
  11. VERAPAMIL ER [Concomitant]
     Indication: JAW DISORDER
     Route: 048
     Dates: start: 20071101
  12. VERAPAMIL ER [Concomitant]
     Indication: SLEEP DISORDER
  13. DYAZINE [Concomitant]
     Indication: DIURETIC THERAPY
     Dosage: 37.5/25 MG IN AM
     Route: 048
     Dates: start: 20070101
  14. HYOSCINE METHOBROMIDE [Concomitant]
     Indication: DIARRHOEA
     Route: 048
     Dates: start: 20071101
  15. ROBOXIN [Concomitant]
     Indication: MUSCLE RELAXANT THERAPY
     Route: 048
     Dates: start: 20060101
  16. PROPACET 100 [Concomitant]
     Indication: ARTHRALGIA
     Route: 048
     Dates: start: 19880101
  17. PROPACET 100 [Concomitant]
     Indication: RHEUMATOID ARTHRITIS

REACTIONS (15)
  - ABDOMINAL PAIN [None]
  - APPENDICITIS [None]
  - ASTHENIA [None]
  - ERYTHEMA [None]
  - GAIT DISTURBANCE [None]
  - INFLUENZA LIKE ILLNESS [None]
  - INJECTION SITE ERYTHEMA [None]
  - INJECTION SITE PAIN [None]
  - INJECTION SITE PRURITUS [None]
  - INJECTION SITE RASH [None]
  - INTESTINAL RESECTION [None]
  - LARGE INTESTINE ANASTOMOSIS [None]
  - NODULE [None]
  - PRURITUS [None]
  - RASH [None]
